FAERS Safety Report 6945147-0 (Version None)
Quarter: 2010Q3

REPORT INFORMATION
  Report Type: 
  Country: None (occurrence: None)
  Receive Date: 20100827
  Receipt Date: 20100818
  Transmission Date: 20110219
  Serious: Yes (Other)
  Sender: FDA-Public Use
  Company Number: US-PFIZER INC-2010104868

PATIENT
  Sex: Female

DRUGS (1)
  1. TOVIAZ [Suspect]
     Dosage: UNK
     Dates: start: 20100101, end: 20100101

REACTIONS (8)
  - GLAUCOMA [None]
  - HYPOACUSIS [None]
  - MEMORY IMPAIRMENT [None]
  - NEOPLASM MALIGNANT [None]
  - SURGERY [None]
  - URINARY INCONTINENCE [None]
  - VISION BLURRED [None]
  - VISUAL ACUITY REDUCED [None]
